FAERS Safety Report 8997242 (Version 1)
Quarter: 2013Q1

REPORT INFORMATION
  Report Type: Spontaneous
  Country: US (occurrence: US)
  Receive Date: 20130104
  Receipt Date: 20130104
  Transmission Date: 20140127
  Serious: Yes (Hospitalization)
  Sender: FDA-Public Use
  Company Number: US-PFIZER INC-2012333315

PATIENT
  Age: 50 Year
  Sex: Male
  Weight: 112 kg

DRUGS (2)
  1. PRIMATENE [Suspect]
     Indication: ASTHMA
     Dosage: UNK
     Dates: end: 2011
  2. ALBUTEROL [Suspect]
     Indication: ASTHMA
     Dosage: UNK,TWO PUFFS
     Dates: start: 2011

REACTIONS (4)
  - Asthma [Unknown]
  - Drug ineffective [Unknown]
  - Dyspnoea [Unknown]
  - Lung disorder [Unknown]
